FAERS Safety Report 5901236-0 (Version None)
Quarter: 2008Q3

REPORT INFORMATION
  Report Type: 
  Country: None (occurrence: None)
  Receive Date: 20080929
  Receipt Date: 20080630
  Transmission Date: 20090109
  Serious: No
  Sender: FDA-Public Use
  Company Number: US-BRISTOL-MYERS SQUIBB COMPANY-14245138

PATIENT
  Age: 63 Year
  Sex: Female
  Weight: 70 kg

DRUGS (17)
  1. ORENCIA [Suspect]
     Indication: RHEUMATOID ARTHRITIS
     Route: 042
     Dates: start: 20070801
  2. TOPAMAX [Concomitant]
     Dosage: DOSAGE INCREASED FROM 50MG TO 75MG.
  3. CYCLOBENZAPRINE HCL [Concomitant]
  4. LISINOPRIL [Concomitant]
  5. METHYLPREDNISOLONE [Concomitant]
     Dosage: CURRENTLY BEING WEANED.
     Dates: start: 20020101
  6. LEUCOVORIN CALCIUM [Concomitant]
  7. METHOTREXATE [Concomitant]
  8. LORAZEPAM [Concomitant]
  9. TRAMADOL HCL [Concomitant]
  10. AMBIEN CR [Concomitant]
  11. WELLBUTRIN [Concomitant]
     Dates: end: 20080301
  12. VITAMIN E [Concomitant]
  13. MULTI-VITAMIN [Concomitant]
  14. ZINC [Concomitant]
  15. VITAMIN B COMPLEX CAP [Concomitant]
  16. WELLBUTRIN [Concomitant]
  17. EVENING PRIMROSE OIL [Concomitant]

REACTIONS (4)
  - DECREASED APPETITE [None]
  - MIGRAINE [None]
  - VOMITING PROJECTILE [None]
  - WEIGHT DECREASED [None]
